FAERS Safety Report 6456093-3 (Version None)
Quarter: 2009Q4

REPORT INFORMATION
  Report Type: 
  Country: None (occurrence: None)
  Receive Date: 20091125
  Receipt Date: 20091025
  Transmission Date: 20100525
  Serious: No
  Sender: FDA-Public Use
  Company Number: US-BAYER-200937660NA

PATIENT
  Age: 48 Year
  Sex: Female
  Weight: 52 kg

DRUGS (1)
  1. AVELOX [Suspect]
     Indication: SINUSITIS
     Route: 048
     Dates: start: 20091018, end: 20091022

REACTIONS (5)
  - HEADACHE [None]
  - NAUSEA [None]
  - TACHYCARDIA [None]
  - TENDON DISORDER [None]
  - TENDON PAIN [None]
